FAERS Safety Report 6579384-4 (Version None)
Quarter: 2010Q1

REPORT INFORMATION
  Report Type: 
  Country: None (occurrence: None)
  Receive Date: 20100212
  Receipt Date: 20100205
  Transmission Date: 20100710
  Serious: Yes (Death)
  Sender: FDA-Public Use
  Company Number: US-WYE-H13404710

PATIENT
  Age: 32 Year
  Sex: Female

DRUGS (1)
  1. ROBITUSSIN [Suspect]
     Indication: INFLUENZA LIKE ILLNESS
     Dosage: UNKNOWN
     Route: 048

REACTIONS (3)
  - DRUG TOXICITY [None]
  - IRON DEFICIENCY ANAEMIA [None]
  - PNEUMONIA [None]
